FAERS Safety Report 22027060 (Version 3)
Quarter: 2023Q2

REPORT INFORMATION
  Report Type: Spontaneous
  Country: CZ (occurrence: CZ)
  Receive Date: 20230223
  Receipt Date: 20230626
  Transmission Date: 20230721
  Serious: Yes (Other)
  Sender: FDA-Public Use
  Company Number: CZ-Accord-301525

PATIENT
  Age: 51 Year
  Sex: Male

DRUGS (12)
  1. METHOTREXATE [Suspect]
     Active Substance: METHOTREXATE
     Indication: Chronic myeloid leukaemia
     Dosage: 2ND, 31ST, AND 33RD DAYS OF CHEMOTHERAPY
     Route: 037
     Dates: start: 2014
  2. CYTARABINE [Suspect]
     Active Substance: CYTARABINE
     Indication: Chronic myeloid leukaemia
     Dosage: 2ND, 31ST, AND 33RD DAYS OF CHEMOTHERAPY
     Route: 037
     Dates: start: 2014
  3. IMATINIB [Suspect]
     Active Substance: IMATINIB
     Indication: Chronic myeloid leukaemia
     Dates: start: 2014
  4. DAUNORUBICIN HYDROCHLORIDE [Suspect]
     Active Substance: DAUNORUBICIN HYDROCHLORIDE
     Indication: Chronic myeloid leukaemia
     Dosage: 80 MG PER DAY; DAYS 7-8 AND 14-15 OF CHEMOTHERAPY
     Dates: start: 2014
  5. VINCRISTINE [Suspect]
     Active Substance: VINCRISTINE
     Indication: Chronic myeloid leukaemia
     Dosage: 2 MG PER DAY; DAYS 7 AND 14 OF CHEMOTHERAPY
     Dates: start: 2014
  6. CYCLOPHOSPHAMIDE [Suspect]
     Active Substance: CYCLOPHOSPHAMIDE
     Indication: Chronic myeloid leukaemia
     Dosage: 360 MG PER DAY; DAYS 4-6 OF CHEMOTHERAPY
     Dates: start: 2014
  7. ASPARAGINASE [Suspect]
     Active Substance: ASPARAGINASE
     Indication: Chronic myeloid leukaemia
     Dosage: 9000IE; DAYS 17 AND 25 OF CHEMOTHERAPY
     Dates: start: 2014
  8. RITUXIMAB [Suspect]
     Active Substance: RITUXIMAB
     Indication: Chronic myeloid leukaemia
     Dosage: 100 MG DAY 1, 200 MG DAY 2, 400 MG DAY 3 OF CHEMOTHERAPY
     Dates: start: 2014
  9. DEXAMETHASONE [Suspect]
     Active Substance: DEXAMETHASONE
     Indication: Chronic myeloid leukaemia
     Dosage: 2ND, 31ST, AND 33RD DAYS OF CHEMOTHERAPY
     Route: 037
     Dates: start: 2014
  10. VINCRISTINE [Suspect]
     Active Substance: VINCRISTINE
     Indication: Chronic myeloid leukaemia
     Dosage: 2 MG PER DAY; DAYS 7 AND 14 OF CHEMOTHERAPY
     Dates: start: 2014
  11. CYCLOPHOSPHAMIDE [Suspect]
     Active Substance: CYCLOPHOSPHAMIDE
     Indication: Chronic myeloid leukaemia
     Dosage: 360 MG PER DAY; DAYS 4-6 OF CHEMOTHERAPY
     Dates: start: 2014
  12. DAUNORUBICIN HYDROCHLORIDE [Suspect]
     Active Substance: DAUNORUBICIN HYDROCHLORIDE
     Indication: Chronic myeloid leukaemia
     Dosage: 80 MG PER DAY; DAYS 7-8 AND 14-15 OF CHEMOTHERAPY
     Dates: start: 2014

REACTIONS (7)
  - Weight decreased [Unknown]
  - Pancreatitis acute [Unknown]
  - Cerebral toxoplasmosis [Recovering/Resolving]
  - Ileus [Unknown]
  - Mucosal inflammation [Unknown]
  - Liver disorder [Unknown]
  - Pneumonia fungal [Unknown]
